FAERS Safety Report 10892665 (Version 2)
Quarter: 2015Q1

REPORT INFORMATION
  Report Type: Spontaneous
  Country: CN (occurrence: CN)
  Receive Date: 20150306
  Receipt Date: 20150310
  Transmission Date: 20150721
  Serious: Yes (Hospitalization)
  Sender: FDA-Public Use
  Company Number: CN-009507513-1503CHN003539

PATIENT
  Age: 43 Year
  Sex: Female
  Weight: 45 kg

DRUGS (1)
  1. ELOSON [Suspect]
     Active Substance: MOMETASONE
     Indication: PRURITUS
     Dosage: 0.2 G, TID
     Route: 061
     Dates: start: 20140502, end: 20140502

REACTIONS (4)
  - Local swelling [Recovering/Resolving]
  - Alanine aminotransferase increased [Recovering/Resolving]
  - Superinfection [Recovering/Resolving]
  - Pyrexia [Recovering/Resolving]

NARRATIVE: CASE EVENT DATE: 20140503
